FAERS Safety Report 8271211-2 (Version None)
Quarter: 2012Q2

REPORT INFORMATION
  Report Type: 
  Country: None (occurrence: None)
  Receive Date: 20120406
  Receipt Date: 20120326
  Transmission Date: 20120825
  Serious: Yes (Death, Other)
  Sender: FDA-Public Use
  Company Number: 2012P1011363

PATIENT
  Age: 78 Year
  Sex: Male

DRUGS (2)
  1. PHENYTOIN [Suspect]
     Indication: SUBDURAL HAEMATOMA
  2. PHENYTOIN [Suspect]
     Indication: CEREBRAL HAEMORRHAGE

REACTIONS (3)
  - DRUG RASH WITH EOSINOPHILIA AND SYSTEMIC SYMPTOMS [None]
  - HEPATIC FAILURE [None]
  - GASTROINTESTINAL HAEMORRHAGE [None]
